FAERS Safety Report 7557159-7 (Version None)
Quarter: 2011Q2

REPORT INFORMATION
  Report Type: 
  Country: None (occurrence: None)
  Receive Date: 20110620
  Receipt Date: 20110608
  Transmission Date: 20111010
  Serious: Yes (Hospitalization)
  Sender: FDA-Public Use
  Company Number: DE-SANOFI-AVENTIS-2011SA034580

PATIENT
  Age: 53 Year
  Sex: Male
  Weight: 134 kg

DRUGS (13)
  1. OXALIPLATIN [Suspect]
     Indication: RECTAL CANCER
     Dosage: ON DAY 1,8,15,22 AND 29
     Route: 042
     Dates: start: 20110221
  2. THERAPEUTIC RADIOPHARMACEUTICALS [Suspect]
     Dosage: DOSE:45 UNIT(S)
     Dates: start: 20110221, end: 20110331
  3. CAPECITABINE [Suspect]
     Indication: RECTAL CANCER
     Dosage: FREQUENCY: TWO TIMES A DAYON DAY 1-33 WITHOUT WEEKENDS+OPTIONAL BOOST
     Route: 048
     Dates: start: 20110221
  4. PANTOPRAZOLE [Concomitant]
     Indication: PROPHYLAXIS
     Route: 048
     Dates: start: 20110518, end: 20110521
  5. NOVALGIN [Concomitant]
     Route: 048
     Dates: start: 20110518, end: 20110521
  6. NOVALGIN [Concomitant]
     Route: 042
     Dates: start: 20110512, end: 20110517
  7. EMBOLEX [Concomitant]
     Indication: PROPHYLAXIS
     Route: 058
     Dates: start: 20110512
  8. SCOPOLAMINE [Concomitant]
     Route: 042
     Dates: start: 20110518, end: 20110522
  9. ATACAND [Concomitant]
     Route: 048
  10. FLUVASTATIN [Concomitant]
     Route: 048
  11. PANTOPRAZOLE [Concomitant]
     Route: 042
     Dates: start: 20110512, end: 20110517
  12. SCOPOLAMINE [Concomitant]
     Route: 042
     Dates: start: 20110518, end: 20110522
  13. METOPROLOL SUCCINATE [Concomitant]
     Route: 048

REACTIONS (2)
  - FAILURE TO ANASTOMOSE [None]
  - PYREXIA [None]
